FAERS Safety Report 14773105 (Version 1)
Quarter: 2018Q2

REPORT INFORMATION
  Report Type: Report from Study
  Country: RU (occurrence: RU)
  Receive Date: 20180418
  Receipt Date: 20180418
  Transmission Date: 20180711
  Serious: Yes (Other)
  Sender: FDA-Public Use
  Company Number: RU-ROCHE-2104025

PATIENT

DRUGS (3)
  1. PEGINTERFERON ALFA-2B [Suspect]
     Active Substance: PEGINTERFERON ALFA-2B
     Indication: CHRONIC HEPATITIS C
     Dosage: AT 1.5 MCG/KG OF BODY WEIGHT PER WEEK
     Route: 065
  2. RIBAVIRIN. [Suspect]
     Active Substance: RIBAVIRIN
     Indication: CHRONIC HEPATITIS C
     Dosage: AT A DOSE OF 1000 MG/DAY WITH A BODY WEIGHT OF {75 KG AND 1200 MG WITH A BODY WEIGHT }75 KG PER DAY,
     Route: 065
  3. PEG-INTERFERON ALFA 2A [Suspect]
     Active Substance: PEGINTERFERON ALFA-2A
     Indication: CHRONIC HEPATITIS C
     Dosage: AT A FIXED DOSAGE OF 180 MCG PER WEEK
     Route: 065

REACTIONS (26)
  - Anaemia [Unknown]
  - Pruritus [Unknown]
  - Skin exfoliation [Unknown]
  - Hypothyroidism [Unknown]
  - Myalgia [Unknown]
  - Dizziness [Unknown]
  - Headache [Unknown]
  - Alopecia [Unknown]
  - Leukopenia [Unknown]
  - Thrombocytopenia [Unknown]
  - Asthenia [Unknown]
  - Apathy [Unknown]
  - Irritability [Unknown]
  - Weight decreased [Unknown]
  - Depression [Unknown]
  - Nausea [Unknown]
  - Abdominal pain [Unknown]
  - Dry skin [Unknown]
  - Lymphopenia [Unknown]
  - Pulmonary tuberculosis [Unknown]
  - Neutropenia [Unknown]
  - Aggression [Unknown]
  - Rash [Unknown]
  - Fatigue [Unknown]
  - Influenza like illness [Unknown]
  - Sleep disorder [Unknown]
